FAERS Safety Report 6546945-8 (Version None)
Quarter: 2010Q1

REPORT INFORMATION
  Report Type: 
  Country: None (occurrence: None)
  Receive Date: 20100122
  Receipt Date: 20100118
  Transmission Date: 20100710
  Serious: Yes (Death, Hospitalization)
  Sender: FDA-Public Use
  Company Number: A0787911A

PATIENT
  Age: 70 Year
  Sex: Female
  Weight: 65.9 kg

DRUGS (1)
  1. AVANDIA [Suspect]
     Indication: TYPE 2 DIABETES MELLITUS
     Dosage: 4MG PER DAY
     Route: 048
     Dates: start: 20021201, end: 20070720

REACTIONS (7)
  - DEATH [None]
  - DISCOMFORT [None]
  - ECONOMIC PROBLEM [None]
  - INJURY [None]
  - MYOCARDIAL INFARCTION [None]
  - PAIN [None]
  - UNEVALUABLE EVENT [None]
